FAERS Safety Report 8187668-1 (Version None)
Quarter: 2012Q1

REPORT INFORMATION
  Report Type: 
  Country: None (occurrence: None)
  Receive Date: 20120306
  Receipt Date: 20120229
  Transmission Date: 20120608
  Serious: Yes (Other)
  Sender: FDA-Public Use
  Company Number: US-PFIZER INC-2010167864

PATIENT
  Sex: Female

DRUGS (1)
  1. CELEBREX [Suspect]
     Dosage: UNK

REACTIONS (6)
  - ABASIA [None]
  - OXYGEN SUPPLEMENTATION [None]
  - MALAISE [None]
  - HYPOACUSIS [None]
  - ARTHRITIS [None]
  - CONFUSIONAL STATE [None]
